FAERS Safety Report 17942442 (Version 1)
Quarter: 2020Q2

REPORT INFORMATION
  Report Type: Spontaneous
  Country: DE (occurrence: DE)
  Receive Date: 20200624
  Receipt Date: 20200624
  Transmission Date: 20200714
  Serious: Yes (Hospitalization)
  Sender: FDA-Public Use
  Company Number: DE-ANIPHARMA-2020-DE-000137

PATIENT
  Age: 83 Year
  Sex: Female

DRUGS (10)
  1. NALOXONE+TILIDINE [Suspect]
     Active Substance: NALOXONE HYDROCHLORIDE\TILIDINE HYDROCHLORIDE
     Dosage: 1 DOSAGE FORM (4/50 MG) DAILY
  2. DIMENHYDRINATE. [Concomitant]
     Active Substance: DIMENHYDRINATE
     Dosage: 150 MG UNK
     Route: 065
  3. NIFEDIPINE. [Concomitant]
     Active Substance: NIFEDIPINE
     Dosage: 5 MG UNK
     Route: 065
  4. NOVAMINSULFON [Concomitant]
     Active Substance: METAMIZOLE
     Dosage: 500 MG Q6H
     Route: 065
  5. BISACODYL. [Concomitant]
     Active Substance: BISACODYL
     Dosage: 20 MG QD
     Route: 065
  6. CHLORTALIDONE [Suspect]
     Active Substance: CHLORTHALIDONE
     Dosage: 25 MG UNK
  7. PRAVASTATIN. [Concomitant]
     Active Substance: PRAVASTATIN
     Dosage: 20 MG QD
     Route: 065
  8. LEVOTHYROXINE+POTASSIUM IODIDE [Concomitant]
     Dosage: 75/150 MICROGRAM, DAILY
     Route: 065
  9. CANDESARTAN CILEXETIL. [Suspect]
     Active Substance: CANDESARTAN CILEXETIL
     Indication: PRODUCT USED FOR UNKNOWN INDICATION
     Dosage: 32 MG QD
     Route: 048
  10. OMEPRAZOL [Concomitant]
     Active Substance: OMEPRAZOLE
     Dosage: 20 MG QD
     Route: 065

REACTIONS (6)
  - Flatulence [Unknown]
  - General physical health deterioration [Unknown]
  - Abdominal distension [Unknown]
  - Vomiting [Unknown]
  - Constipation [Unknown]
  - Nausea [Unknown]
